FAERS Safety Report 25792719 (Version 1)
Quarter: 2025Q3

REPORT INFORMATION
  Report Type: Spontaneous
  Country: US (occurrence: US)
  Receive Date: 20250911
  Receipt Date: 20250911
  Transmission Date: 20251020
  Serious: No
  Sender: ELI LILLY AND COMPANY
  Company Number: US-ELI_LILLY_AND_COMPANY-US202509006317

PATIENT
  Age: 64 Year
  Sex: Female

DRUGS (6)
  1. ZEPBOUND [Suspect]
     Active Substance: TIRZEPATIDE
     Indication: Paraesthesia
     Dosage: 15 MG, WEEKLY (1/W)
     Route: 065
     Dates: start: 20240102
  2. ZEPBOUND [Suspect]
     Active Substance: TIRZEPATIDE
     Indication: Paraesthesia
     Dosage: 15 MG, WEEKLY (1/W)
     Route: 065
     Dates: start: 20240102
  3. ZEPBOUND [Suspect]
     Active Substance: TIRZEPATIDE
     Indication: Paraesthesia
     Dosage: 15 MG, WEEKLY (1/W)
     Route: 065
     Dates: start: 20240102
  4. ZEPBOUND [Suspect]
     Active Substance: TIRZEPATIDE
     Indication: Paraesthesia
     Dosage: 15 MG, WEEKLY (1/W)
     Route: 065
     Dates: start: 20240102
  5. OMEPRAZOLE [Concomitant]
     Active Substance: OMEPRAZOLE
     Indication: Gastrooesophageal reflux disease
     Dates: start: 20250501
  6. MOBIC [Concomitant]
     Active Substance: MELOXICAM
     Indication: Inflammation
     Dates: start: 20240801

REACTIONS (3)
  - Off label use [Unknown]
  - Injection site haemorrhage [Unknown]
  - Injection site discomfort [Unknown]

NARRATIVE: CASE EVENT DATE: 20240102
